FAERS Safety Report 8405011-7 (Version None)
Quarter: 2012Q2

REPORT INFORMATION
  Report Type: 
  Country: None (occurrence: None)
  Receive Date: 20120601
  Receipt Date: 20120107
  Transmission Date: 20120825
  Serious: No
  Sender: FDA-Public Use
  Company Number: US-NOVEN-12US003901

PATIENT
  Sex: Female

DRUGS (2)
  1. DAYTRANA [Suspect]
     Indication: PRODUCT USED FOR UNKNOWN INDICATION
     Dosage: 15 MG, QD
     Route: 062
  2. DAYTRANA [Suspect]
     Dosage: 10 MG, UNK

REACTIONS (7)
  - NERVOUSNESS [None]
  - PRODUCT QUALITY ISSUE [None]
  - WITHDRAWAL SYNDROME [None]
  - DISTURBANCE IN ATTENTION [None]
  - OFF LABEL USE [None]
  - HYPERHIDROSIS [None]
  - ANGER [None]
